FAERS Safety Report 4868246-6 (Version None)
Quarter: 2005Q4

REPORT INFORMATION
  Report Type: 
  Country: None (occurrence: None)
  Receive Date: 20051227
  Receipt Date: 20051216
  Transmission Date: 20060501
  Serious: Yes (Death, Hospitalization)
  Sender: FDA-Public Use
  Company Number: 2005-10-1021

PATIENT
  Age: 53 Year
  Sex: Male

DRUGS (1)
  1. INTRON A [Suspect]
     Indication: METASTATIC MALIGNANT MELANOMA
     Dosage: 20 MIU QD
     Dates: start: 20051010, end: 20051014

REACTIONS (1)
  - CEREBRAL HAEMATOMA [None]
